FAERS Safety Report 25074390 (Version 1)
Quarter: 2025Q1

REPORT INFORMATION
  Report Type: Other
  Country: US (occurrence: US)
  Receive Date: 20250313
  Receipt Date: 20250313
  Transmission Date: 20250409
  Serious: Yes (Hospitalization, Other)
  Sender: ANI
  Company Number: US-ANIPHARMA-015950

PATIENT
  Age: 83 Year
  Sex: Male

DRUGS (3)
  1. CLOPIDOGREL BISULFATE [Suspect]
     Active Substance: CLOPIDOGREL BISULFATE
     Indication: Middle cerebral artery stroke
  2. ASPIRIN [Concomitant]
     Active Substance: ASPIRIN
     Indication: Middle cerebral artery stroke
  3. ATORVASTATIN [Concomitant]
     Active Substance: ATORVASTATIN
     Indication: Middle cerebral artery stroke

REACTIONS (2)
  - Haemodynamic instability [Unknown]
  - Haemorrhagic transformation stroke [Unknown]
